FAERS Safety Report 9314713 (Version 1)
Quarter: 2013Q2

REPORT INFORMATION
  Report Type: Spontaneous
  Country: US (occurrence: US)
  Receive Date: 20130529
  Receipt Date: 20130529
  Transmission Date: 20140414
  Serious: Yes (Hospitalization)
  Sender: FDA-Public Use
  Company Number: US-ROCHE-1229469

PATIENT
  Sex: Male

DRUGS (3)
  1. ZELBORAF [Suspect]
     Indication: MALIGNANT MELANOMA STAGE IV
     Route: 065
  2. KEPPRA [Concomitant]
     Indication: CONVULSION
     Route: 048
  3. LAMICTAL [Concomitant]
     Indication: CONVULSION
     Route: 065

REACTIONS (1)
  - Convulsion [Recovering/Resolving]
